FAERS Safety Report 10263406 (Version 1)
Quarter: 2014Q2

REPORT INFORMATION
  Report Type: Spontaneous
  Country: US (occurrence: US)
  Receive Date: 20140626
  Receipt Date: 20140626
  Transmission Date: 20141212
  Serious: No
  Sender: FDA-Public Use
  Company Number: US-BAXTER-2014BAX033577

PATIENT
  Sex: Female

DRUGS (2)
  1. 0.9% SODIUM CHLORIDE INJECTION [Suspect]
     Indication: PRODUCT USED FOR UNKNOWN INDICATION
     Route: 042
  2. GLASSIA [Suspect]
     Indication: PRODUCT USED FOR UNKNOWN INDICATION
     Route: 042

REACTIONS (8)
  - Fatigue [Unknown]
  - Pain [Unknown]
  - Respiratory tract congestion [Unknown]
  - Arthralgia [Unknown]
  - Feeling abnormal [Unknown]
  - Feeling hot [Unknown]
  - Chills [Unknown]
  - Pyrexia [Unknown]
